FAERS Safety Report 10707661 (Version 3)
Quarter: 2015Q1

REPORT INFORMATION
  Report Type: Spontaneous
  Country: US (occurrence: US)
  Receive Date: 20150113
  Receipt Date: 20150223
  Transmission Date: 20150721
  Serious: Yes (Death, Life-Threatening, Hospitalization, Other)
  Sender: FDA-Public Use
  Company Number: US-GLAXOSMITHKLINE INC.-A1069310A

PATIENT
  Age: 56 Year
  Sex: Male
  Weight: 70 kg

DRUGS (8)
  1. IBRUTINIB [Concomitant]
     Active Substance: IBRUTINIB
  2. ALLOPURINOL. [Concomitant]
     Active Substance: ALLOPURINOL
  3. FOLIC ACID. [Concomitant]
     Active Substance: FOLIC ACID
  4. ARZERRA [Suspect]
     Active Substance: OFATUMUMAB
     Indication: CHRONIC LYMPHOCYTIC LEUKAEMIA
     Dosage: 2000 MG, Z
     Route: 042
     Dates: start: 20130822, end: 20140127
  5. PENTAMIDINE [Concomitant]
     Active Substance: PENTAMIDINE
  6. ACYCLOVIR. [Concomitant]
     Active Substance: ACYCLOVIR
  7. ALEMTUZUMAB [Concomitant]
     Active Substance: ALEMTUZUMAB
  8. OMEPRAZOLE. [Concomitant]
     Active Substance: OMEPRAZOLE

REACTIONS (18)
  - Immunodeficiency [Unknown]
  - General physical health deterioration [Unknown]
  - Cough [Unknown]
  - Malaise [Unknown]
  - Diarrhoea [Unknown]
  - Asthenia [Unknown]
  - Interstitial lung disease [Unknown]
  - Productive cough [Not Recovered/Not Resolved]
  - Lymphadenopathy [Unknown]
  - Bronchopulmonary aspergillosis [Fatal]
  - Hypoxia [Unknown]
  - Lung infiltration [Unknown]
  - Aspergillus infection [Unknown]
  - Dyspnoea exertional [Unknown]
  - Dizziness [Unknown]
  - Chromaturia [Unknown]
  - Disease progression [Unknown]
  - Supportive care [Unknown]

NARRATIVE: CASE EVENT DATE: 201310
